FAERS Safety Report 5513867-0 (Version None)
Quarter: 2007Q4

REPORT INFORMATION
  Report Type: 
  Country: None (occurrence: None)
  Receive Date: 20071109
  Receipt Date: 20071109
  Transmission Date: 20080405
  Serious: Yes (Hospitalization)
  Sender: FDA-Public Use
  Company Number: None

PATIENT
  Sex: Female
  Weight: 98.5 kg

DRUGS (1)
  1. TEMOZOLOMIDE [Suspect]
     Dosage: 6510 MG

REACTIONS (1)
  - FEBRILE NEUTROPENIA [None]
